FAERS Safety Report 8771581 (Version 1)
Quarter: 2012Q4

REPORT INFORMATION
  Report Type: 
  Country: US (occurrence: US)
  Receive Date: 20120906
  Receipt Date: 20120906
  Transmission Date: 20130627
  Serious: No
  Sender: FDA-Public Use
  Company Number: US-PFIZER INC-2012218532

PATIENT
  Age: 48 Year
  Sex: Female
  Weight: 62.13 kg

DRUGS (3)
  1. LYRICA [Suspect]
     Indication: FIBROMYALGIA
     Dosage: 75 mg, 2x/day
     Route: 048
     Dates: end: 201208
  2. TRAZODONE [Concomitant]
     Indication: INSOMNIA
     Dosage: 150 mg, daily
  3. CELEXA [Concomitant]
     Indication: DEPRESSION
     Dosage: 20 mg, daily

REACTIONS (2)
  - Pain [Not Recovered/Not Resolved]
  - Drug ineffective [Unknown]
